FAERS Safety Report 8443429-7 (Version None)
Quarter: 2012Q2

REPORT INFORMATION
  Report Type: 
  Country: None (occurrence: None)
  Receive Date: 20120612
  Receipt Date: 20120612
  Transmission Date: 20120825
  Serious: No
  Sender: FDA-Public Use
  Company Number: None

PATIENT

DRUGS (1)
  1. METOCLOPRAMIDE [Suspect]
     Dosage: SOLUTION ORAL
     Route: 048

REACTIONS (3)
  - DRUG DISPENSING ERROR [None]
  - PRODUCT LABEL ISSUE [None]
  - MEDICATION ERROR [None]
